FAERS Safety Report 8774078 (Version 2)
Quarter: 2013Q1

REPORT INFORMATION
  Report Type: Report from Study
  Country: JP (occurrence: JP)
  Receive Date: 20120907
  Receipt Date: 20130124
  Transmission Date: 20140127
  Serious: Yes (Hospitalization)
  Sender: FDA-Public Use
  Company Number: JP-009507513-1209JPN000398

PATIENT
  Age: 71 Year
  Sex: Female
  Weight: 58 kg

DRUGS (8)
  1. PEGINTRON [Suspect]
     Indication: CHRONIC HEPATITIS C
     Dosage: 1.5 MCG/KG/WEEK
     Route: 058
     Dates: start: 20120216, end: 20120605
  2. REBETOL [Suspect]
     Indication: CHRONIC HEPATITIS C
     Dosage: 200 MG, QD  (CUMULATIVE DOSE:200 MG)
     Route: 048
     Dates: start: 20120216, end: 20120329
  3. REBETOL [Suspect]
     Dosage: 200 MG, QD (CUMULATIVE DOSE:200 MG)
     Route: 048
     Dates: start: 20120401, end: 20120611
  4. TELAVIC [Suspect]
     Indication: CHRONIC HEPATITIS C
     Dosage: 1500 MG, QD (CUMULATIVE DOSE :1500 MG)
     Route: 048
     Dates: start: 20120216, end: 20120329
  5. TELAVIC [Suspect]
     Dosage: 1500 MG, QD (CUMULATIVE DISE :1500 MG)
     Route: 048
     Dates: start: 20120401, end: 20120509
  6. AVAPRO [Concomitant]
     Indication: HYPERTENSION
     Dosage: 100 MG, QD
     Route: 048
  7. GASTER D [Concomitant]
     Indication: PROPHYLAXIS
     Dosage: 40 MG, QD
     Route: 048
     Dates: start: 20120216, end: 20120611
  8. PEGASYS [Concomitant]
     Indication: HEPATITIS C
     Dosage: 180 MCG
     Route: 058
     Dates: start: 20120626, end: 20120702

REACTIONS (1)
  - Liver disorder [Recovered/Resolved]
